FAERS Safety Report 21442003 (Version 1)
Quarter: 2022Q4

REPORT INFORMATION
  Report Type: Spontaneous
  Country: US (occurrence: US)
  Receive Date: 20221011
  Receipt Date: 20221011
  Transmission Date: 20230112
  Serious: No
  Sender: FDA-Public Use
  Company Number: US-Sprout Pharmaceuticals, Inc.-2022SP000057

PATIENT
  Age: 45 Year
  Sex: Female
  Weight: 74.910 kg

DRUGS (2)
  1. ADDYI [Suspect]
     Active Substance: FLIBANSERIN
     Indication: Libido decreased
     Dosage: BEFORE BEDTIME
     Route: 048
     Dates: start: 20211201, end: 202202
  2. SUMATRIPTAN [Concomitant]
     Active Substance: SUMATRIPTAN
     Indication: Migraine
     Dosage: 1 TABLET AS NEEDED FOR MIGRAINES, REPEAT 1 TABLET IF NEEDED IN 2 HOURS

REACTIONS (3)
  - Product use in unapproved indication [Recovered/Resolved]
  - Therapeutic product effect decreased [Unknown]
  - Drug ineffective for unapproved indication [Recovered/Resolved]

NARRATIVE: CASE EVENT DATE: 20211201
